FAERS Safety Report 6601540-7 (Version None)
Quarter: 2010Q1

REPORT INFORMATION
  Report Type: 
  Country: None (occurrence: None)
  Receive Date: 20100225
  Receipt Date: 20100215
  Transmission Date: 20100710
  Serious: Yes (Hospitalization, Disabling, Other)
  Sender: FDA-Public Use
  Company Number: US-ROCHE-408632

PATIENT
  Sex: Male
  Weight: 79.4 kg

DRUGS (5)
  1. ACCUTANE [Suspect]
     Indication: ACNE
     Route: 048
     Dates: start: 19840101, end: 19850101
  2. ACCUTANE [Suspect]
     Route: 048
     Dates: start: 19940601, end: 19940901
  3. ACCUTANE [Suspect]
     Route: 048
     Dates: start: 19970519
  4. ACCUTANE [Suspect]
     Route: 048
     Dates: start: 19970722
  5. IBUPROFEN [Concomitant]
     Dosage: TAKEN WEEKLY OVER THE LAST TEN YEARS.

REACTIONS (20)
  - ANKYLOSING SPONDYLITIS [None]
  - ANORECTAL STENOSIS [None]
  - CHEILITIS [None]
  - COLITIS [None]
  - COLITIS ULCERATIVE [None]
  - CROHN'S DISEASE [None]
  - DRY SKIN [None]
  - FATIGUE [None]
  - GASTROINTESTINAL DISORDER [None]
  - GASTROINTESTINAL HAEMORRHAGE [None]
  - GENERALISED OEDEMA [None]
  - HEADACHE [None]
  - INFLAMMATORY BOWEL DISEASE [None]
  - INTESTINAL ANASTOMOSIS COMPLICATION [None]
  - IRRITABLE BOWEL SYNDROME [None]
  - LEUKOCYTOSIS [None]
  - LIVER FUNCTION TEST ABNORMAL [None]
  - PLATELET COUNT DECREASED [None]
  - RECTAL HAEMORRHAGE [None]
  - SACROILIITIS [None]
